FAERS Safety Report 9825218 (Version 1)
Quarter: 2014Q1

REPORT INFORMATION
  Report Type: Spontaneous
  Country: US (occurrence: US)
  Receive Date: 20140117
  Receipt Date: 20140117
  Transmission Date: 20141002
  Serious: Yes (Other)
  Sender: FDA-Public Use
  Company Number: US-ASTRAZENECA-2014SE02809

PATIENT
  Age: 77 Year
  Sex: Female
  Weight: 74.8 kg

DRUGS (2)
  1. ARIMIDEX [Suspect]
     Indication: OVARIAN CANCER STAGE III
     Route: 048
     Dates: start: 2012, end: 2014
  2. LOVENOX [Concomitant]
     Indication: THROMBOSIS
     Dosage: BID
     Route: 058
     Dates: start: 2014

REACTIONS (5)
  - Thoracic vertebral fracture [Not Recovered/Not Resolved]
  - Fracture [Not Recovered/Not Resolved]
  - Pain [Not Recovered/Not Resolved]
  - Impaired healing [Not Recovered/Not Resolved]
  - Off label use [Unknown]
